FAERS Safety Report 25686940 (Version 1)
Quarter: 2025Q3

REPORT INFORMATION
  Report Type: Spontaneous
  Country: US (occurrence: US)
  Receive Date: 20250816
  Receipt Date: 20250816
  Transmission Date: 20251020
  Serious: No
  Sender: GLAXOSMITHKLINE
  Company Number: US-GSK-US2025AMR096419

PATIENT
  Sex: Female
  Weight: 53 kg

DRUGS (1)
  1. ZEJULA [Suspect]
     Active Substance: NIRAPARIB
     Indication: Ovarian cancer
     Dosage: 1 DF, QD (1 TABLET)

REACTIONS (3)
  - White blood cell count abnormal [Unknown]
  - Red blood cell count abnormal [Unknown]
  - Product use issue [Unknown]
